FAERS Safety Report 7395933-0 (Version None)
Quarter: 2011Q2

REPORT INFORMATION
  Report Type: 
  Country: None (occurrence: None)
  Receive Date: 20110406
  Receipt Date: 20110328
  Transmission Date: 20111010
  Serious: Yes (Death, Other)
  Sender: FDA-Public Use
  Company Number: US-BIOGENIDEC-2011BI011495

PATIENT
  Age: 48 Year
  Sex: Female

DRUGS (1)
  1. AVONEX [Suspect]
     Indication: MULTIPLE SCLEROSIS
     Route: 030
     Dates: start: 20000911, end: 20101223

REACTIONS (7)
  - CARDIAC ARREST [None]
  - SUBARACHNOID HAEMORRHAGE [None]
  - PULMONARY OEDEMA [None]
  - METABOLIC ACIDOSIS [None]
  - CARDIO-RESPIRATORY ARREST [None]
  - RESPIRATORY ACIDOSIS [None]
  - HYPOTENSION [None]
